FAERS Safety Report 24401222 (Version 2)
Quarter: 2024Q4

REPORT INFORMATION
  Report Type: Spontaneous
  Country: US (occurrence: US)
  Receive Date: 20241007
  Receipt Date: 20241111
  Transmission Date: 20250114
  Serious: No
  Sender: JOHNSON AND JOHNSON
  Company Number: US-JNJFOC-20240952522

PATIENT
  Sex: Female

DRUGS (19)
  1. REMICADE [Suspect]
     Active Substance: INFLIXIMAB
     Indication: Product used for unknown indication
     Route: 041
  2. DULOXETINE [Concomitant]
     Active Substance: DULOXETINE
     Dosage: TAKE 1 CAPSULE BY MOUTH ONCE DAILY
     Route: 048
     Dates: start: 20230615
  3. FOLIC ACID [Concomitant]
     Active Substance: FOLIC ACID
     Dosage: TAKE 1 TABLET BY MOUTH ONCE DAILY
     Route: 048
     Dates: start: 20240423
  4. FUROSEMIDE [Concomitant]
     Active Substance: FUROSEMIDE
     Dosage: 2 TABS IN THE AM, 1 TAB IN THE PM
  5. HYDROCODONE [Concomitant]
     Active Substance: HYDROCODONE
     Dates: start: 20220822
  6. ACETAMINOPHEN [Concomitant]
     Active Substance: ACETAMINOPHEN
     Dates: start: 20220822
  7. HYDROXYCHLOROQUINE [Concomitant]
     Active Substance: HYDROXYCHLOROQUINE
     Dosage: TAKE 2 TABLETS BY MOUTH ONCE DAILY
     Dates: start: 20240904
  8. LOSARTAN [Concomitant]
     Active Substance: LOSARTAN
     Dates: start: 20230808
  9. ONDANSETRON [Concomitant]
     Active Substance: ONDANSETRON
     Dosage: DISINTEQRATINQ TABLET
     Dates: start: 20230703
  10. POTASSIUM CHLORIDE [Concomitant]
     Active Substance: POTASSIUM CHLORIDE
     Dosage: 20 MEQ TABLET,EXTENDED RELEASE(PART/CRYST)
     Dates: start: 20230710
  11. PREGABALIN [Concomitant]
     Active Substance: PREGABALIN
     Dosage: TAKE 1 CAPSULE BY MOUTH TWICE DAILY
     Dates: start: 20230929
  12. SIMVASTATIN [Concomitant]
     Active Substance: SIMVASTATIN
     Dates: start: 20220831
  13. SIMVASTATIN [Concomitant]
     Active Substance: SIMVASTATIN
     Dosage: TAKE 1 TABLET BY MOUTH ONCE DAILY AT BEDTIME
     Dates: start: 20230515
  14. SPIRONOLACTONE [Concomitant]
     Active Substance: SPIRONOLACTONE
     Dates: start: 20230630
  15. ALLOPURINOL [Concomitant]
     Active Substance: ALLOPURINOL
     Dosage: TAKE 1 /2 TABLET BY ORAL 20-AUG-2024 TABLET ROUTE EVERY DAY FOR TWO WEEKS FOLLOWED BY A A FU II TAB
     Dates: start: 20240820
  16. GLOPERBA [Concomitant]
     Active Substance: COLCHICINE
     Dosage: TAKE 4 MILLILITER BY ORAL  ACCESS TO ML ORAL SOLUTION ROUTE EVERY DAY
     Dates: start: 20240821, end: 20240821
  17. HYDROXYCHLOROQUINE [Concomitant]
     Active Substance: HYDROXYCHLOROQUINE
     Dosage: TAKE 2 TABLET BY ORAL  ROUTE EVERY DAY
     Dates: start: 20230516
  18. METHOTREXATE [Concomitant]
     Active Substance: METHOTREXATE
     Dosage: INJECT 0.8 MILLILITER BY  SODIUM 25 MG/ML SUBCUTANEOUS ROUTE?INJECTION SOLUTION EVERY WEEK
     Route: 058
     Dates: start: 20200521, end: 20210821
  19. METHOTREXATE [Concomitant]
     Active Substance: METHOTREXATE
     Dosage: INJECT 0.8 MILLILITER BY  SODIUM 25 MG/ML SUBCUTANEOUS ROUTE?INJECTION SOLUTION EVERY WEEK
     Route: 058
     Dates: start: 20230609, end: 20230815

REACTIONS (3)
  - Contusion [Unknown]
  - Cough [Unknown]
  - Haematoma [Unknown]
